FAERS Safety Report 8619631 (Version 2)
Quarter: 2013Q3

REPORT INFORMATION
  Report Type: Spontaneous
  Country: US (occurrence: US)
  Receive Date: 20120618
  Receipt Date: 20130723
  Transmission Date: 20140515
  Serious: Yes (Hospitalization, Other)
  Sender: FDA-Public Use
  Company Number: US-ROCHE-1056730

PATIENT
  Age: 15 Year
  Sex: Male
  Weight: 86.26 kg

DRUGS (3)
  1. ACCUTANE [Suspect]
     Indication: ACNE
     Route: 065
     Dates: start: 1998
  2. ACCUTANE [Suspect]
     Route: 065
     Dates: start: 19990801, end: 20000101
  3. ACCUTANE [Suspect]
     Route: 065
     Dates: start: 2003

REACTIONS (5)
  - Inflammatory bowel disease [Unknown]
  - Deep vein thrombosis [Unknown]
  - Colitis ulcerative [Unknown]
  - Dry skin [Unknown]
  - Lip dry [Unknown]
